FAERS Safety Report 19057741 (Version 1)
Quarter: 2021Q1

REPORT INFORMATION
  Report Type: Report from Study
  Country: AR (occurrence: AR)
  Receive Date: 20210324
  Receipt Date: 20210324
  Transmission Date: 20210420
  Serious: Yes (Hospitalization, Other)
  Sender: FDA-Public Use
  Company Number: AR-ASTRAZENECA-2021A146146

PATIENT
  Age: 24482 Day
  Sex: Male

DRUGS (31)
  1. DURVALUMAB. [Suspect]
     Active Substance: DURVALUMAB
     Indication: SMALL CELL LUNG CANCER LIMITED STAGE
     Route: 042
     Dates: start: 20200420, end: 20200420
  2. DURVALUMAB. [Suspect]
     Active Substance: DURVALUMAB
     Indication: SMALL CELL LUNG CANCER LIMITED STAGE
     Route: 042
     Dates: start: 20201201, end: 20201201
  3. TREMELIMUMAB. [Suspect]
     Active Substance: TREMELIMUMAB
     Indication: SMALL CELL LUNG CANCER LIMITED STAGE
     Route: 042
     Dates: start: 20190618, end: 20190618
  4. TREMELIMUMAB. [Suspect]
     Active Substance: TREMELIMUMAB
     Indication: SMALL CELL LUNG CANCER LIMITED STAGE
     Route: 042
     Dates: start: 20190715, end: 20190715
  5. OMEPRAZOLE. [Concomitant]
     Active Substance: OMEPRAZOLE
     Indication: OESOPHAGITIS
     Route: 048
     Dates: start: 20190730
  6. TREMELIMUMAB. [Suspect]
     Active Substance: TREMELIMUMAB
     Indication: SMALL CELL LUNG CANCER LIMITED STAGE
     Route: 042
     Dates: start: 20190812, end: 20190812
  7. ENALAPRIL [Concomitant]
     Active Substance: ENALAPRIL
     Indication: HYPERTENSION
     Route: 048
     Dates: start: 1988
  8. DURVALUMAB. [Suspect]
     Active Substance: DURVALUMAB
     Indication: SMALL CELL LUNG CANCER LIMITED STAGE
     Route: 042
     Dates: start: 20200617, end: 20200617
  9. DURVALUMAB. [Suspect]
     Active Substance: DURVALUMAB
     Indication: SMALL CELL LUNG CANCER LIMITED STAGE
     Route: 042
     Dates: start: 20200714, end: 20200714
  10. CLONAZEPAM. [Concomitant]
     Active Substance: CLONAZEPAM
     Indication: ANXIETY
     Route: 048
     Dates: start: 20200410
  11. DURVALUMAB. [Suspect]
     Active Substance: DURVALUMAB
     Indication: SMALL CELL LUNG CANCER LIMITED STAGE
     Route: 042
     Dates: start: 20201005, end: 20201005
  12. DURVALUMAB. [Suspect]
     Active Substance: DURVALUMAB
     Indication: SMALL CELL LUNG CANCER LIMITED STAGE
     Route: 042
     Dates: start: 20201103, end: 20201103
  13. EMPAGLIFLOZIN [Concomitant]
     Active Substance: EMPAGLIFLOZIN
     Indication: TYPE 2 DIABETES MELLITUS
     Route: 048
     Dates: start: 20170829, end: 20190805
  14. METFORMIN [Concomitant]
     Active Substance: METFORMIN HYDROCHLORIDE
     Indication: TYPE 2 DIABETES MELLITUS
     Route: 048
     Dates: start: 20190805
  15. DURVALUMAB. [Suspect]
     Active Substance: DURVALUMAB
     Indication: SMALL CELL LUNG CANCER LIMITED STAGE
     Route: 042
     Dates: start: 20191104, end: 20191107
  16. DURVALUMAB. [Suspect]
     Active Substance: DURVALUMAB
     Indication: SMALL CELL LUNG CANCER LIMITED STAGE
     Route: 042
     Dates: start: 20200127, end: 20200127
  17. DURVALUMAB. [Suspect]
     Active Substance: DURVALUMAB
     Indication: SMALL CELL LUNG CANCER LIMITED STAGE
     Route: 042
     Dates: start: 20190812, end: 20190812
  18. DURVALUMAB. [Suspect]
     Active Substance: DURVALUMAB
     Indication: SMALL CELL LUNG CANCER LIMITED STAGE
     Route: 042
     Dates: start: 20191007, end: 20191007
  19. DURVALUMAB. [Suspect]
     Active Substance: DURVALUMAB
     Indication: SMALL CELL LUNG CANCER LIMITED STAGE
     Route: 042
     Dates: start: 20200811, end: 20200811
  20. DURVALUMAB. [Suspect]
     Active Substance: DURVALUMAB
     Indication: SMALL CELL LUNG CANCER LIMITED STAGE
     Route: 042
     Dates: start: 20190618, end: 20190618
  21. ALPRAZOLAM. [Concomitant]
     Active Substance: ALPRAZOLAM
     Indication: ANXIETY
     Route: 048
     Dates: start: 198801, end: 20200409
  22. DURVALUMAB. [Suspect]
     Active Substance: DURVALUMAB
     Indication: SMALL CELL LUNG CANCER LIMITED STAGE
     Route: 042
     Dates: start: 20191202, end: 20191202
  23. DURVALUMAB. [Suspect]
     Active Substance: DURVALUMAB
     Indication: SMALL CELL LUNG CANCER LIMITED STAGE
     Route: 042
     Dates: start: 20200221, end: 20200221
  24. DURVALUMAB. [Suspect]
     Active Substance: DURVALUMAB
     Indication: SMALL CELL LUNG CANCER LIMITED STAGE
     Route: 042
     Dates: start: 20200520, end: 20200520
  25. DURVALUMAB. [Suspect]
     Active Substance: DURVALUMAB
     Indication: SMALL CELL LUNG CANCER LIMITED STAGE
     Route: 042
     Dates: start: 20200909, end: 20200909
  26. DURVALUMAB. [Suspect]
     Active Substance: DURVALUMAB
     Indication: SMALL CELL LUNG CANCER LIMITED STAGE
     Route: 042
     Dates: start: 20200102, end: 20200102
  27. DURVALUMAB. [Suspect]
     Active Substance: DURVALUMAB
     Indication: SMALL CELL LUNG CANCER LIMITED STAGE
     Route: 042
     Dates: start: 20200326, end: 20200326
  28. DURVALUMAB. [Suspect]
     Active Substance: DURVALUMAB
     Indication: SMALL CELL LUNG CANCER LIMITED STAGE
     Route: 042
     Dates: start: 20190715, end: 20190715
  29. DURVALUMAB. [Suspect]
     Active Substance: DURVALUMAB
     Indication: SMALL CELL LUNG CANCER LIMITED STAGE
     Route: 042
     Dates: start: 20190909, end: 20190909
  30. TREMELIMUMAB. [Suspect]
     Active Substance: TREMELIMUMAB
     Indication: SMALL CELL LUNG CANCER LIMITED STAGE
     Route: 042
     Dates: start: 20190909, end: 20190909
  31. SITAGLIPTIN [Concomitant]
     Active Substance: SITAGLIPTIN
     Indication: TYPE 2 DIABETES MELLITUS
     Route: 048
     Dates: start: 20190805

REACTIONS (2)
  - Hepatitis [Recovering/Resolving]
  - Drug-induced liver injury [Recovering/Resolving]

NARRATIVE: CASE EVENT DATE: 20210308
